FAERS Safety Report 23820333 (Version 2)
Quarter: 2024Q2

REPORT INFORMATION
  Report Type: Spontaneous
  Country: US (occurrence: US)
  Receive Date: 20240506
  Receipt Date: 20240604
  Transmission Date: 20240716
  Serious: No
  Sender: FDA-Public Use
  Company Number: US-PFIZER INC-202400097886

PATIENT
  Age: 36 Year
  Sex: Male
  Weight: 49.9 kg

DRUGS (1)
  1. GENOTROPIN [Suspect]
     Active Substance: SOMATROPIN
     Indication: Growth hormone deficiency
     Dosage: 0.2 MG, 1X/DAY (INJECTION, ADMINISTERED IN BUTT)
     Dates: start: 2024

REACTIONS (4)
  - Drug dose omission by device [Recovered/Resolved]
  - Device issue [Recovered/Resolved]
  - Device breakage [Recovered/Resolved]
  - Device leakage [Recovered/Resolved]

NARRATIVE: CASE EVENT DATE: 20240101
